FAERS Safety Report 17129275 (Version 1)
Quarter: 2019Q4

REPORT INFORMATION
  Report Type: Spontaneous
  Country: US (occurrence: US)
  Receive Date: 20191209
  Receipt Date: 20191209
  Transmission Date: 20200122
  Serious: No
  Sender: FDA-Public Use
  Company Number: US-SEPTODONT-201804951

PATIENT

DRUGS (1)
  1. CARBOCAINE WITH NEO-COBEFRIN [Suspect]
     Active Substance: LEVONORDEFRIN\MEPIVACAINE HYDROCHLORIDE
     Indication: DENTAL LOCAL ANAESTHESIA
     Route: 004
     Dates: start: 20181212

REACTIONS (1)
  - Drug ineffective [Unknown]

NARRATIVE: CASE EVENT DATE: 20181212
